FAERS Safety Report 6284784-6 (Version None)
Quarter: 2009Q3

REPORT INFORMATION
  Report Type: 
  Country: None (occurrence: None)
  Receive Date: 20090727
  Receipt Date: 20090722
  Transmission Date: 20100115
  Serious: Yes (Death, Life-Threatening, Hospitalization, Other)
  Sender: FDA-Public Use
  Company Number: PHHY2009JP22667

PATIENT
  Age: 65 Year
  Sex: Male

DRUGS (3)
  1. ZOMETA [Suspect]
     Indication: METASTASES TO BONE
     Dosage: 4 MG
     Route: 042
     Dates: start: 20080707, end: 20090501
  2. DECADRON [Suspect]
     Dosage: 1 MG
     Route: 048
     Dates: start: 20050701, end: 20090514
  3. DOCETAXEL [Suspect]
     Dosage: 80 MG
     Route: 041
     Dates: start: 20080509, end: 20090508

REACTIONS (7)
  - BONE DISORDER [None]
  - MALIGNANT NEOPLASM PROGRESSION [None]
  - NEUTROPHIL COUNT DECREASED [None]
  - OSTEONECROSIS [None]
  - PLATELET COUNT DECREASED [None]
  - TOOTHACHE [None]
  - WOUND DRAINAGE [None]
